FAERS Safety Report 9248200 (Version 8)
Quarter: 2014Q3

REPORT INFORMATION
  Report Type: Spontaneous
  Country: US (occurrence: US)
  Receive Date: 20130423
  Receipt Date: 20140710
  Transmission Date: 20150326
  Serious: Yes (Hospitalization, Disabling, Other)
  Sender: FDA-Public Use
  Company Number: US-ASTRAZENECA-2013SE27439

PATIENT
  Age: 55 Year
  Sex: Female
  Weight: 78 kg

DRUGS (29)
  1. NEXIUM [Suspect]
     Active Substance: ESOMEPRAZOLE MAGNESIUM
     Indication: GASTROOESOPHAGEAL REFLUX DISEASE
     Route: 048
     Dates: start: 2004, end: 2011
  2. VICODEN [Concomitant]
     Indication: PAIN
     Dosage: 1-2 EVERY 4-8 HOUR AS NEEDED
     Dates: start: 20040527
  3. VICODEN [Concomitant]
     Indication: PAIN
     Dosage: 5/500, 1 TABLET PO Q 6-8 HOURS PRN
     Route: 048
     Dates: start: 20051201
  4. MOBIC [Concomitant]
     Active Substance: MELOXICAM
     Route: 048
     Dates: start: 20081215
  5. BACTRIM [Concomitant]
     Active Substance: SULFAMETHOXAZOLE\TRIMETHOPRIM
     Route: 048
     Dates: start: 20130625
  6. ASPIRIN. [Concomitant]
     Active Substance: ASPIRIN
     Indication: HEADACHE
  7. IBUPROFEN. [Concomitant]
     Active Substance: IBUPROFEN
     Dosage: 1 TAB PO Q 6 HOURS PRN
     Route: 048
     Dates: start: 20051201
  8. PREDNISONE. [Concomitant]
     Active Substance: PREDNISONE
     Dosage: 1 TAB PO DAILY FOR 5 DAYS
     Route: 048
     Dates: start: 20060106
  9. ARTHROTEC [Concomitant]
     Active Substance: DICLOFENAC SODIUM\MISOPROSTOL
     Dosage: 75 MG-200 MCG TWO TIMES A DAY
     Route: 048
     Dates: start: 20140212
  10. NEXIUM [Suspect]
     Active Substance: ESOMEPRAZOLE MAGNESIUM
     Indication: GASTROOESOPHAGEAL REFLUX DISEASE
     Route: 048
     Dates: start: 20060306
  11. COZAAR [Concomitant]
     Active Substance: LOSARTAN POTASSIUM
     Indication: HYPERTENSION
  12. DETROL LA [Concomitant]
     Active Substance: TOLTERODINE TARTRATE
     Route: 048
     Dates: start: 20060113, end: 20080711
  13. AMBIEN [Concomitant]
     Active Substance: ZOLPIDEM TARTRATE
     Route: 048
     Dates: start: 20070918
  14. PEPCID [Concomitant]
     Active Substance: FAMOTIDINE
     Indication: GASTROOESOPHAGEAL REFLUX DISEASE
     Dosage: ABOUT A MONTH
     Dates: start: 2005
  15. NAPROXEN. [Concomitant]
     Active Substance: NAPROXEN
     Dosage: 1 TAB PO Q 12 PRN TAKE WITH FOOD
     Route: 048
     Dates: start: 20060717
  16. MULTI VITS [Concomitant]
     Indication: VITAMIN SUPPLEMENTATION
  17. NEXIUM [Suspect]
     Active Substance: ESOMEPRAZOLE MAGNESIUM
     Indication: GASTROOESOPHAGEAL REFLUX DISEASE
     Route: 048
     Dates: start: 20050224
  18. NEXIUM [Suspect]
     Active Substance: ESOMEPRAZOLE MAGNESIUM
     Indication: GASTROOESOPHAGEAL REFLUX DISEASE
     Route: 048
     Dates: start: 20050315
  19. VICODEN [Concomitant]
     Indication: PAIN
     Dosage: FOUR TIMES A DAY AS NEEDED
     Route: 048
     Dates: start: 20071117
  20. PERCOCET [Concomitant]
     Active Substance: ACETAMINOPHEN\OXYCODONE HYDROCHLORIDE
     Indication: PAIN
     Dosage: 1 TABLET EVERY 6-8 HOURS AS NEEDED
     Route: 048
     Dates: start: 20140226
  21. NEXIUM [Suspect]
     Active Substance: ESOMEPRAZOLE MAGNESIUM
     Indication: GASTROOESOPHAGEAL REFLUX DISEASE
     Dosage: ONCE
     Route: 048
     Dates: start: 20050224, end: 20100219
  22. CELEBREX [Concomitant]
     Active Substance: CELECOXIB
     Dosage: 200 MG, 3 TIMES
  23. NEXIUM [Suspect]
     Active Substance: ESOMEPRAZOLE MAGNESIUM
     Indication: GASTROOESOPHAGEAL REFLUX DISEASE
     Dosage: ONCE
     Route: 048
     Dates: start: 201004, end: 201108
  24. NEXIUM [Suspect]
     Active Substance: ESOMEPRAZOLE MAGNESIUM
     Indication: GASTROOESOPHAGEAL REFLUX DISEASE
     Route: 048
     Dates: start: 201108
  25. PANTOPRAZOLE [Concomitant]
     Active Substance: PANTOPRAZOLE SODIUM
     Indication: GASTROOESOPHAGEAL REFLUX DISEASE
     Route: 048
     Dates: start: 20100219
  26. SOMA [Concomitant]
     Active Substance: CARISOPRODOL
     Dosage: 1 TAB PO Q 8 HOURS PRN
     Route: 048
     Dates: start: 20070524
  27. CYMBALTA [Concomitant]
     Active Substance: DULOXETINE HYDROCHLORIDE
     Route: 048
  28. NEXIUM [Suspect]
     Active Substance: ESOMEPRAZOLE MAGNESIUM
     Indication: GASTROOESOPHAGEAL REFLUX DISEASE
     Route: 048
     Dates: start: 20120104
  29. VITAMIN D/CALCIUM [Concomitant]
     Indication: VITAMIN SUPPLEMENTATION
     Dosage: 1500 MG

REACTIONS (32)
  - Pubis fracture [Unknown]
  - Lumbar spinal stenosis [Unknown]
  - Anaemia [Unknown]
  - Osteopenia [Unknown]
  - Rotator cuff syndrome [Unknown]
  - Meniscus injury [Unknown]
  - Osteoarthritis [Unknown]
  - Spinal osteoarthritis [Unknown]
  - Fall [Unknown]
  - Arthritis [Unknown]
  - Intervertebral disc compression [Unknown]
  - Facial bones fracture [Unknown]
  - Lumbar radiculopathy [Unknown]
  - Deep vein thrombosis [Unknown]
  - Intervertebral disc protrusion [Unknown]
  - Lower limb fracture [Unknown]
  - Neuritis [Unknown]
  - Joint injury [Unknown]
  - Pelvic fracture [Unknown]
  - Face injury [Unknown]
  - Fractured coccyx [Unknown]
  - Haematoma [Unknown]
  - Spinal fracture [Unknown]
  - Bone disorder [Unknown]
  - Tibia fracture [Unknown]
  - Lumbar vertebral fracture [Unknown]
  - Spinal compression fracture [Unknown]
  - Road traffic accident [Unknown]
  - Joint effusion [Unknown]
  - Osteoporosis [Unknown]
  - Intervertebral disc degeneration [Unknown]
  - Intervertebral disc displacement [Unknown]

NARRATIVE: CASE EVENT DATE: 200507
